FAERS Safety Report 9624080 (Version 1)
Quarter: 2013Q4

REPORT INFORMATION
  Report Type: Spontaneous
  Country: US (occurrence: US)
  Receive Date: 20131015
  Receipt Date: 20131015
  Transmission Date: 20140711
  Serious: No
  Sender: FDA-Public Use
  Company Number: US-BAUSCH-BL-2013-001147

PATIENT
  Sex: Male

DRUGS (1)
  1. NEOMYCIN AND POLYMYXIN B SULFATES AND HYDROCORTISONE OTIC SUSPENSION U [Suspect]
     Indication: OTITIS EXTERNA
     Dosage: THREE DROPS INTO EACH EAR THREE TIMES DAILY
     Route: 001
     Dates: start: 20121214

REACTIONS (1)
  - Drug ineffective [Not Recovered/Not Resolved]
